FAERS Safety Report 22146104 (Version 1)
Quarter: 2023Q1

REPORT INFORMATION
  Report Type: Spontaneous
  Country: US (occurrence: None)
  Receive Date: 20230327
  Receipt Date: 20230327
  Transmission Date: 20230417
  Serious: Yes (Hospitalization)
  Sender: FDA-Public Use
  Company Number: None

PATIENT
  Age: 58 Year
  Sex: Female
  Weight: 70 kg

DRUGS (1)
  1. IBANDRONATE SODIUM [Suspect]
     Active Substance: IBANDRONATE SODIUM
     Indication: Osteoporosis
     Dosage: OTHER FREQUENCY : ONCE MONTHLY;?
     Route: 048
     Dates: start: 20220401

REACTIONS (3)
  - Abdominal pain upper [None]
  - Melaena [None]
  - Faeces discoloured [None]

NARRATIVE: CASE EVENT DATE: 20230327
